FAERS Safety Report 17096760 (Version 2)
Quarter: 2019Q4

REPORT INFORMATION
  Report Type: Report from Study
  Country: FR (occurrence: FR)
  Receive Date: 20191202
  Receipt Date: 20191211
  Transmission Date: 20200122
  Serious: Yes (Hospitalization)
  Sender: FDA-Public Use
  Company Number: FR-ROCHE-2481048

PATIENT
  Age: 53 Year
  Sex: Male
  Weight: 88 kg

DRUGS (11)
  1. METHYLPREDNISOLONE. [Concomitant]
     Active Substance: METHYLPREDNISOLONE
     Indication: PREMEDICATION
     Dosage: ONCE?BEFORE?INFUSION
     Route: 042
     Dates: start: 20181207
  2. CETIRIZINE [Concomitant]
     Active Substance: CETIRIZINE HYDROCHLORIDE
     Dosage: ONCE?BEFORE?INFUSION
     Route: 048
     Dates: start: 20181221
  3. CETIRIZINE [Concomitant]
     Active Substance: CETIRIZINE HYDROCHLORIDE
     Dosage: ONCE?BEFORE?INFUSION
     Route: 048
     Dates: start: 20190523
  4. OCRELIZUMAB. [Suspect]
     Active Substance: OCRELIZUMAB
     Indication: PROGRESSIVE MULTIPLE SCLEROSIS
     Dosage: MOST RECENT DOSE OF OCRELIZUMAB PRIOR TO EVENT ONSET: 23/MAY/2019?INITIAL DOSE OF TWO 300-MG INFUSIO
     Route: 042
     Dates: start: 20181207
  5. METHYLPREDNISOLONE. [Concomitant]
     Active Substance: METHYLPREDNISOLONE
     Dosage: ONCE?BEFORE?INFUSION
     Route: 042
     Dates: start: 20190523
  6. METHYLPREDNISOLONE. [Concomitant]
     Active Substance: METHYLPREDNISOLONE
     Dosage: ONCE?BEFORE?INFUSION
     Route: 042
     Dates: start: 20181221
  7. DAFALGAN [Concomitant]
     Active Substance: ACETAMINOPHEN
     Dosage: ONCE?BEFORE?INFUSION
     Route: 048
     Dates: start: 20190523
  8. CETIRIZINE [Concomitant]
     Active Substance: CETIRIZINE HYDROCHLORIDE
     Indication: PREMEDICATION
     Dosage: ONCE?BEFORE?INFUSION
     Route: 048
     Dates: start: 20181207
  9. DAFALGAN [Concomitant]
     Active Substance: ACETAMINOPHEN
     Dosage: ONCE?BEFORE?INFUSION
     Route: 048
     Dates: start: 20181221
  10. DOLIPRANE [Concomitant]
     Active Substance: ACETAMINOPHEN
     Indication: INTERVERTEBRAL DISC PROTRUSION
     Dosage: AS NEEDED
     Route: 048
     Dates: start: 20190523
  11. DAFALGAN [Concomitant]
     Active Substance: ACETAMINOPHEN
     Indication: PREMEDICATION
     Dosage: ONCE?BEFORE?INFUSION
     Route: 048
     Dates: start: 20181207

REACTIONS (1)
  - Neurological decompensation [Not Recovered/Not Resolved]

NARRATIVE: CASE EVENT DATE: 20190607
